FAERS Safety Report 21728952 (Version 2)
Quarter: 2022Q4

REPORT INFORMATION
  Report Type: Spontaneous
  Country: TW (occurrence: TW)
  Receive Date: 20221214
  Receipt Date: 20221227
  Transmission Date: 20230113
  Serious: Yes (Hospitalization, Other)
  Sender: FDA-Public Use
  Company Number: TW-CHUGAI-2022049162

PATIENT
  Age: 70 Year
  Sex: Female
  Weight: 67.1 kg

DRUGS (3)
  1. ACTEMRA [Suspect]
     Active Substance: TOCILIZUMAB
     Indication: Rheumatoid arthritis
     Dosage: 400 MILLIGRAM, ONCE/MONTH
     Route: 042
     Dates: start: 20140905, end: 20220907
  2. PREDNISOLONE [Concomitant]
     Active Substance: PREDNISOLONE
     Indication: Rheumatoid arthritis
     Dosage: 2.5 MILLIGRAM, QD
     Route: 048
     Dates: start: 20130510
  3. PLAQUENIL [Concomitant]
     Active Substance: HYDROXYCHLOROQUINE SULFATE
     Indication: Rheumatoid arthritis
     Dosage: 100 MILLIGRAM, QD
     Route: 048
     Dates: start: 20120314

REACTIONS (4)
  - Ovarian cancer [Recovering/Resolving]
  - Metastases to peritoneum [Unknown]
  - Metastases to pleura [Unknown]
  - Metastases to abdominal cavity [Unknown]

NARRATIVE: CASE EVENT DATE: 20220101
